FAERS Safety Report 20589482 (Version 1)
Quarter: 2022Q1

REPORT INFORMATION
  Report Type: Spontaneous
  Country: US (occurrence: None)
  Receive Date: 20220314
  Receipt Date: 20220314
  Transmission Date: 20220423
  Serious: Yes (Hospitalization)
  Sender: FDA-Public Use
  Company Number: None

PATIENT
  Age: 77 Year
  Sex: Male

DRUGS (1)
  1. APIXABAN [Suspect]
     Active Substance: APIXABAN
     Indication: Product used for unknown indication
     Dosage: 5 MG BID PO?
     Route: 048

REACTIONS (7)
  - Gastric haemorrhage [None]
  - Gastrointestinal arteriovenous malformation [None]
  - Gastrointestinal angiodysplasia [None]
  - Dyspnoea exertional [None]
  - Packed red blood cell transfusion [None]
  - Haemoglobin decreased [None]
  - Haemorrhagic arteriovenous malformation [None]

NARRATIVE: CASE EVENT DATE: 20220109
